FAERS Safety Report 5105257-X (Version None)
Quarter: 2006Q3

REPORT INFORMATION
  Report Type: 
  Country: None (occurrence: None)
  Receive Date: 20060911
  Receipt Date: 20060828
  Transmission Date: 20061208
  Serious: Yes (Hospitalization)
  Sender: FDA-Public Use
  Company Number: 227496

PATIENT
  Age: 40 Year
  Sex: Female
  Weight: 40.8 kg

DRUGS (2)
  1. AVASTIN [Suspect]
     Indication: GLIOMA
     Dates: start: 20060201, end: 20060301
  2. CPT-11 (IRINOTECAN HYDROCHLORIDE) [Concomitant]

REACTIONS (13)
  - ABASIA [None]
  - ANOREXIA [None]
  - CARDIAC FAILURE CONGESTIVE [None]
  - CEREBROVASCULAR ACCIDENT [None]
  - GRAND MAL CONVULSION [None]
  - HAEMODIALYSIS [None]
  - HAEMOLYTIC URAEMIC SYNDROME [None]
  - HYPERTENSION [None]
  - PULMONARY OEDEMA [None]
  - RENAL FAILURE ACUTE [None]
  - THERAPY NON-RESPONDER [None]
  - THROMBOCYTOPENIA [None]
  - TRANSIENT ISCHAEMIC ATTACK [None]
